FAERS Safety Report 6634100-2 (Version None)
Quarter: 2010Q1

REPORT INFORMATION
  Report Type: 
  Country: None (occurrence: None)
  Receive Date: 20100315
  Receipt Date: 20100308
  Transmission Date: 20100710
  Serious: Yes (Hospitalization)
  Sender: FDA-Public Use
  Company Number: US-BRISTOL-MYERS SQUIBB COMPANY-14957310

PATIENT
  Age: 70 Year
  Sex: Male
  Weight: 86 kg

DRUGS (13)
  1. COUMADIN [Suspect]
     Indication: ATRIAL FIBRILLATION
     Dosage: RESTARTED ON 1 WEEK THEN WITHDRAWN
     Route: 048
     Dates: start: 20080501, end: 20091205
  2. PLAVIX [Suspect]
     Indication: MYOCARDIAL INFARCTION
     Route: 048
     Dates: start: 20091205, end: 20100113
  3. ASPIRIN [Suspect]
     Dates: start: 20091205, end: 20100113
  4. GLIPIZIDE [Concomitant]
  5. INSULIN [Concomitant]
  6. METOPROLOL [Concomitant]
  7. CARDIZEM [Concomitant]
  8. HYDROCHLOROTHIAZIDE [Concomitant]
  9. MICARDIS [Concomitant]
  10. LEXAPRO [Concomitant]
  11. FLOMAX [Concomitant]
     Route: 048
  12. CRESTOR [Concomitant]
  13. METFORMIN HCL [Concomitant]

REACTIONS (6)
  - AGEUSIA [None]
  - ANAEMIA [None]
  - ASTHENIA [None]
  - CEREBROVASCULAR ACCIDENT [None]
  - DECREASED APPETITE [None]
  - MYOCARDIAL INFARCTION [None]
